FAERS Safety Report 8453042-3 (Version None)
Quarter: 2012Q2

REPORT INFORMATION
  Report Type: 
  Country: None (occurrence: None)
  Receive Date: 20120620
  Receipt Date: 20120508
  Transmission Date: 20120825
  Serious: No
  Sender: FDA-Public Use
  Company Number: US-VERTEX PHARMACEUTICALS INC.-AE-2012-006531

PATIENT
  Sex: Male
  Weight: 83.99 kg

DRUGS (4)
  1. LISINOPRIL [Concomitant]
     Indication: HYPERTENSION
     Route: 048
  2. RIBAVIRIN [Concomitant]
     Indication: HEPATITIS C
     Dates: start: 20120216
  3. PEGASYS [Concomitant]
     Indication: HEPATITIS C
     Route: 058
     Dates: start: 20120216
  4. INCIVEK [Suspect]
     Indication: HEPATITIS C
     Route: 048
     Dates: start: 20120216

REACTIONS (10)
  - HEADACHE [None]
  - RHINORRHOEA [None]
  - TOOTH EXTRACTION [None]
  - RASH [None]
  - PRURITUS [None]
  - SENSITIVITY OF TEETH [None]
  - ANORECTAL DISCOMFORT [None]
  - ANAL PRURITUS [None]
  - PAIN [None]
  - FATIGUE [None]
